FAERS Safety Report 19630616 (Version 1)
Quarter: 2021Q3

REPORT INFORMATION
  Report Type: Spontaneous
  Country: TN (occurrence: TN)
  Receive Date: 20210729
  Receipt Date: 20210729
  Transmission Date: 20211014
  Serious: Yes (Other)
  Sender: FDA-Public Use
  Company Number: TN-AMNEAL PHARMACEUTICALS-2021-AMRX-03013

PATIENT
  Age: 10 Year
  Sex: Male

DRUGS (6)
  1. LAMOTRIGINE ODT [Suspect]
     Active Substance: LAMOTRIGINE
     Indication: GENERALISED ONSET NON-MOTOR SEIZURE
     Dosage: GRADUALLY TO 5 MG/KG/DAY
     Route: 065
  2. ETHOSUXIMIDE. [Concomitant]
     Active Substance: ETHOSUXIMIDE
     Indication: GENERALISED ONSET NON-MOTOR SEIZURE
     Dosage: 30 MILLIGRAM/KILOGRAM, DAILY
     Route: 065
  3. CLONAZEPAM. [Concomitant]
     Active Substance: CLONAZEPAM
     Indication: GENERALISED ONSET NON-MOTOR SEIZURE
     Dosage: 0.06 MG/KG/DAY
     Route: 065
  4. LAMOTRIGINE ODT [Suspect]
     Active Substance: LAMOTRIGINE
     Dosage: 9 MG/KG/DAY
     Route: 065
  5. VALPROATE [Concomitant]
     Active Substance: VALPROIC ACID
     Dosage: 30 MG/KG/DAY
     Route: 065
  6. VALPROATE [Concomitant]
     Active Substance: VALPROIC ACID
     Indication: GENERALISED ONSET NON-MOTOR SEIZURE
     Dosage: 20 MG/KG/DAY
     Route: 065

REACTIONS (1)
  - Opsoclonus myoclonus [Unknown]
